FAERS Safety Report 5530324-6 (Version None)
Quarter: 2007Q4

REPORT INFORMATION
  Report Type: 
  Country: None (occurrence: None)
  Receive Date: 20071130
  Receipt Date: 20070614
  Transmission Date: 20080405
  Serious: No
  Sender: FDA-Public Use
  Company Number: A0656613A

PATIENT
  Age: 28 Year
  Sex: Male

DRUGS (1)
  1. AMOXICILLIN + CLAVULANATE POTASSIUM [Suspect]
     Dosage: 875MG TWICE PER DAY
     Route: 048
     Dates: start: 20070301, end: 20070401

REACTIONS (4)
  - ANXIETY [None]
  - DEPRESSION [None]
  - MUSCLE TWITCHING [None]
  - PANIC ATTACK [None]
